FAERS Safety Report 9788610 (Version 2)
Quarter: 2013Q4

REPORT INFORMATION
  Report Type: Spontaneous
  Country: US (occurrence: US)
  Receive Date: 20131230
  Receipt Date: 20131230
  Transmission Date: 20140711
  Serious: No
  Sender: FDA-Public Use
  Company Number: US-ASTRAZENECA-2013SE03806

PATIENT
  Age: 679 Month
  Sex: Male
  Weight: 80.3 kg

DRUGS (1)
  1. BRILINTA [Suspect]
     Indication: STENT PLACEMENT
     Route: 048
     Dates: start: 201301

REACTIONS (2)
  - Visual acuity reduced [Unknown]
  - Visual impairment [Not Recovered/Not Resolved]
